FAERS Safety Report 24382403 (Version 2)
Quarter: 2024Q4

REPORT INFORMATION
  Report Type: Spontaneous
  Country: HR (occurrence: HR)
  Receive Date: 20241001
  Receipt Date: 20241031
  Transmission Date: 20250114
  Serious: Yes (Other)
  Sender: ABBVIE
  Company Number: HR-ABBVIE-5940783

PATIENT
  Sex: Male

DRUGS (1)
  1. SKYRIZI [Suspect]
     Active Substance: RISANKIZUMAB-RZAA
     Indication: Psoriasis
     Route: 058
     Dates: start: 20231201

REACTIONS (2)
  - Pancreatic carcinoma [Unknown]
  - Obesity [Unknown]

NARRATIVE: CASE EVENT DATE: 20240923
